FAERS Safety Report 21792992 (Version 1)
Quarter: 2022Q4

REPORT INFORMATION
  Report Type: Spontaneous
  Country: SA (occurrence: SA)
  Receive Date: 20221229
  Receipt Date: 20221229
  Transmission Date: 20230113
  Serious: No
  Sender: FDA-Public Use
  Company Number: SA-ALKEM LABORATORIES LIMITED-SA-ALKEM-2022-14177

PATIENT
  Age: 4 Month
  Sex: Male
  Weight: 3.65 kg

DRUGS (4)
  1. SIROLIMUS [Suspect]
     Active Substance: SIROLIMUS
     Indication: Hyperinsulinism
     Dosage: 0.1-3 MG/DAY (MAXIMUM DOSE?13 MG/M2/DAY)
     Route: 065
  2. DIAZOXIDE [Suspect]
     Active Substance: DIAZOXIDE
     Indication: Hyperinsulinism
     Dosage: 20 MILLIGRAM/KILOGRAM, QD
     Route: 065
  3. OCTREOTIDE [Suspect]
     Active Substance: OCTREOTIDE
     Indication: Hyperinsulinism
     Dosage: 40 MICROGRAM/KILOGRAM, QD
     Route: 065
  4. OCTREOTIDE [Suspect]
     Active Substance: OCTREOTIDE
     Dosage: 30 MICROGRAM/KILOGRAM, QD
     Route: 058

REACTIONS (2)
  - Leukocytosis [Unknown]
  - Drug ineffective [Unknown]
